FAERS Safety Report 15973718 (Version 1)
Quarter: 2019Q1

REPORT INFORMATION
  Report Type: Spontaneous
  Country: US (occurrence: US)
  Receive Date: 20190217
  Receipt Date: 20190217
  Transmission Date: 20190418
  Serious: Yes (Other)
  Sender: FDA-Public Use
  Company Number: US-JNJFOC-20190215603

PATIENT

DRUGS (1)
  1. DIPHENHYDRAMINE. [Suspect]
     Active Substance: DIPHENHYDRAMINE
     Indication: PSYCHOTIC DISORDER
     Route: 065

REACTIONS (3)
  - Electrocardiogram QT prolonged [Unknown]
  - Product use in unapproved indication [Unknown]
  - Off label use [Unknown]
